FAERS Safety Report 9688308 (Version 2)
Quarter: 2014Q2

REPORT INFORMATION
  Report Type: Spontaneous
  Country: US (occurrence: None)
  Receive Date: 20131112
  Receipt Date: 20140401
  Transmission Date: 20141212
  Serious: Yes (Hospitalization)
  Sender: FDA-Public Use
  Company Number: 2013-US-002719

PATIENT
  Age: 46 Year
  Sex: Female
  Weight: 59 kg

DRUGS (4)
  1. XYREM [Suspect]
     Indication: NARCOLEPSY
     Route: 048
     Dates: start: 201104, end: 2011
  2. REQUIP (ROPINIROLE HYDORCHLORIDE) [Concomitant]
  3. LITHIUM (LITHIUM CARBONATE) TABLET, 300MG [Concomitant]
  4. SEROQUEL (QUETIAPINE FUMARATE) [Concomitant]

REACTIONS (6)
  - Eating disorder [None]
  - Motor dysfunction [None]
  - Insomnia [None]
  - Confusional state [None]
  - Incoherent [None]
  - Irritability [None]
